FAERS Safety Report 7085646-7 (Version None)
Quarter: 2010Q4

REPORT INFORMATION
  Report Type: 
  Country: None (occurrence: None)
  Receive Date: 20101105
  Receipt Date: 20101025
  Transmission Date: 20110411
  Serious: Yes (Other)
  Sender: FDA-Public Use
  Company Number: CA-JNJFOC-20101007182

PATIENT
  Sex: Male
  Weight: 97 kg

DRUGS (6)
  1. REMICADE [Suspect]
     Indication: CROHN'S DISEASE
     Dosage: 10 MG/KG
     Route: 042
  2. REMICADE [Suspect]
     Route: 042
  3. BETNESOL [Concomitant]
     Route: 054
  4. SOLU-CORTEF [Concomitant]
     Indication: PREMEDICATION
     Route: 042
  5. BENADRYL [Concomitant]
     Indication: PREMEDICATION
     Dosage: PO OR IV
  6. ACETAMINOPHEN [Concomitant]
     Indication: PREMEDICATION
     Route: 048

REACTIONS (3)
  - DEFAECATION URGENCY [None]
  - DIARRHOEA [None]
  - HAEMATOCHEZIA [None]
